FAERS Safety Report 10196197 (Version 1)
Quarter: 2014Q2

REPORT INFORMATION
  Report Type: Spontaneous
  Country: US (occurrence: None)
  Receive Date: 20140523
  Receipt Date: 20140523
  Transmission Date: 20141212
  Serious: Yes (Hospitalization)
  Sender: FDA-Public Use
  Company Number: None

PATIENT
  Age: 59 Year
  Sex: Male

DRUGS (8)
  1. HEPARIN [Suspect]
     Indication: ANTICOAGULANT THERAPY
     Dosage: VARIABLE, CONTINUOUS, IV
     Route: 042
     Dates: start: 20140408, end: 20140409
  2. ATORVASTATIN [Concomitant]
  3. DEXTROSE [Concomitant]
  4. DOCUSATE [Concomitant]
  5. FAMOTIDINE [Concomitant]
  6. INSULIN [Concomitant]
  7. LEVOTHYROXINE [Concomitant]
  8. VANCOMYCIN [Concomitant]

REACTIONS (3)
  - Pleural disorder [None]
  - Secretion discharge [None]
  - Condition aggravated [None]
